FAERS Safety Report 8769600 (Version 1)
Quarter: 2012Q4

REPORT INFORMATION
  Report Type: 
  Country: ZA (occurrence: ZA)
  Receive Date: 20120905
  Receipt Date: 20120905
  Transmission Date: 20130627
  Serious: Yes (Hospitalization, Other)
  Sender: FDA-Public Use
  Company Number: ZA-BAYER-2012-091920

PATIENT

DRUGS (8)
  1. CIPROFLOXACIN [Suspect]
     Indication: DIARRHOEA
     Dosage: 500 mg, UNK
  2. CO-TRIMOXAZOLE [Suspect]
     Indication: PROPHYLAXIS
     Dosage: 1920 mg, UNK
  3. CO-TRIMOXAZOLE [Suspect]
     Indication: PROPHYLAXIS
     Dosage: 960 mg, UNK
  4. CO-TRIMOXAZOLE [Suspect]
     Indication: PROPHYLAXIS
     Route: 048
  5. CO-TRIMOXAZOLE [Suspect]
     Indication: PROPHYLAXIS
     Route: 042
  6. STAVUDINE [Concomitant]
     Indication: ANTIRETROVIRAL THERAPY
     Dosage: UNK
  7. LAMIVUDINE [Concomitant]
     Indication: ANTIRETROVIRAL THERAPY
     Dosage: UNK
  8. NEVIRAPINE [Concomitant]
     Indication: ANTIRETROVIRAL THERAPY
     Dosage: UNK

REACTIONS (4)
  - Isosporiasis [Not Recovered/Not Resolved]
  - Diarrhoea [Not Recovered/Not Resolved]
  - Drug resistance [None]
  - Weight decreased [Not Recovered/Not Resolved]
